FAERS Safety Report 9598904 (Version 1)
Quarter: 2013Q4

REPORT INFORMATION
  Report Type: Spontaneous
  Country: US (occurrence: US)
  Receive Date: 20131004
  Receipt Date: 20131004
  Transmission Date: 20140711
  Serious: No
  Sender: FDA-Public Use
  Company Number: US-AMGEN-USASP2013026616

PATIENT
  Age: 47 Year
  Sex: Male

DRUGS (2)
  1. ENBREL [Suspect]
     Indication: ANKYLOSING SPONDYLITIS
     Dosage: UNK UNK, QWK
     Dates: start: 20120504, end: 201301
  2. REMICADE [Concomitant]
     Dosage: UNK

REACTIONS (3)
  - Musculoskeletal stiffness [Not Recovered/Not Resolved]
  - Joint range of motion decreased [Not Recovered/Not Resolved]
  - Inflammation [Not Recovered/Not Resolved]
